FAERS Safety Report 7009549-9 (Version None)
Quarter: 2010Q3

REPORT INFORMATION
  Report Type: 
  Country: None (occurrence: None)
  Receive Date: 20100923
  Receipt Date: 20100920
  Transmission Date: 20110219
  Serious: Yes (Death, Other)
  Sender: FDA-Public Use
  Company Number: PHHY2010JP62151

PATIENT
  Age: 17 Year
  Sex: Female

DRUGS (9)
  1. CYCLOSPORINE [Suspect]
     Dosage: UNK
  2. STEROIDS NOS [Concomitant]
     Dosage: UNK
  3. IMMUNGLOBULIN [Concomitant]
     Route: 042
  4. VINCRISTINE [Concomitant]
  5. VINBLASTINE [Concomitant]
     Dosage: UNK
  6. AZATHIOPRINE [Concomitant]
  7. RITUXIMAB [Concomitant]
  8. GANCICLOVIR [Concomitant]
     Dosage: 300 MG/DAY (4.5 MG/KG TWICE DAILY)
  9. FOSCARNET [Concomitant]

REACTIONS (10)
  - CYTOMEGALOVIRUS GASTROENTERITIS [None]
  - CYTOMEGALOVIRUS INFECTION [None]
  - DRUG RESISTANCE [None]
  - ENCEPHALITIS CYTOMEGALOVIRUS [None]
  - GASTROINTESTINAL HAEMORRHAGE [None]
  - HAEMORRHAGE INTRACRANIAL [None]
  - PERITONEAL HAEMORRHAGE [None]
  - PLATELET COUNT DECREASED [None]
  - PYREXIA [None]
  - SPLENECTOMY [None]
